FAERS Safety Report 24904561 (Version 1)
Quarter: 2025Q1

REPORT INFORMATION
  Report Type: Spontaneous
  Country: US (occurrence: US)
  Receive Date: 20250130
  Receipt Date: 20250130
  Transmission Date: 20250409
  Serious: No
  Sender: Tarsus Pharmaceuticals
  Company Number: US-TARSUS PHARMACEUTICALS-TSP-US-2024-000597

PATIENT
  Sex: Female

DRUGS (2)
  1. XDEMVY [Suspect]
     Active Substance: LOTILANER
     Indication: Arthropod infestation
     Dosage: 1 DROP, BID
     Route: 047
     Dates: start: 20241125
  2. REFRESH PLUS [Concomitant]
     Active Substance: CARBOXYMETHYLCELLULOSE SODIUM
     Indication: Abnormal sensation in eye
     Route: 047
     Dates: start: 202408

REACTIONS (1)
  - Absence of immediate treatment response [Unknown]

NARRATIVE: CASE EVENT DATE: 20241101
